FAERS Safety Report 6834937-0 (Version None)
Quarter: 2010Q3

REPORT INFORMATION
  Report Type: 
  Country: None (occurrence: None)
  Receive Date: 20100712
  Receipt Date: 20070423
  Transmission Date: 20110219
  Serious: No
  Sender: FDA-Public Use
  Company Number: US-PFIZER INC-2007033289

PATIENT
  Sex: Male
  Weight: 95.454 kg

DRUGS (2)
  1. CHANTIX [Suspect]
     Indication: SMOKING CESSATION THERAPY
     Dates: start: 20070404
  2. DRUG, UNSPECIFIED [Concomitant]

REACTIONS (3)
  - FLATULENCE [None]
  - HEADACHE [None]
  - MUSCLE SPASMS [None]
